FAERS Safety Report 7610416-8 (Version None)
Quarter: 2011Q3

REPORT INFORMATION
  Report Type: 
  Country: None (occurrence: None)
  Receive Date: 20110715
  Receipt Date: 20110712
  Transmission Date: 20111222
  Serious: No
  Sender: FDA-Public Use
  Company Number: US-PFIZER INC-2011060500

PATIENT
  Sex: Female
  Weight: 104 kg

DRUGS (1)
  1. ADVIL CONGESTION RELIEF [Suspect]
     Indication: SINUS CONGESTION
     Dosage: 200/10 MG, 2X/DAY
     Route: 048
     Dates: start: 20110201, end: 20110315

REACTIONS (1)
  - DRUG INEFFECTIVE [None]
